FAERS Safety Report 5674123-3 (Version None)
Quarter: 2008Q1

REPORT INFORMATION
  Report Type: 
  Country: None (occurrence: None)
  Receive Date: 20080320
  Receipt Date: 20080318
  Transmission Date: 20080703
  Serious: Yes (Death)
  Sender: FDA-Public Use
  Company Number: IL-NOVOPROD-273220

PATIENT
  Age: 40 Year
  Sex: Male

DRUGS (1)
  1. NOVOSEVEN [Suspect]
     Indication: HAEMORRHAGE
     Dosage: 2 DOSES
     Route: 042
     Dates: start: 20080316

REACTIONS (1)
  - DRUG INEFFECTIVE [None]
